FAERS Safety Report 8377094-4 (Version None)
Quarter: 2012Q2

REPORT INFORMATION
  Report Type: 
  Country: None (occurrence: None)
  Receive Date: 20120521
  Receipt Date: 20120504
  Transmission Date: 20120825
  Serious: Yes (Death, Life-Threatening, Hospitalization, Disabling, Other)
  Sender: FDA-Public Use
  Company Number: 2012SGN00027

PATIENT
  Age: 75 Year
  Sex: Male
  Weight: 82 kg

DRUGS (5)
  1. TRIAMCINOLONE (TRIAMCINOLONE ACETONIDE) ) [Concomitant]
  2. GABAPENTIN [Concomitant]
  3. LEVOFLOXACIN [Concomitant]
  4. BRENTUXIMAB VEDOTIN (BRENTUXIMAB VEDOTIN) INJECTION [Suspect]
     Indication: MYCOSIS FUNGOIDES
     Dosage: 1.8 MG/KG, Q2LD, INTRAVENOUS
     Route: 042
     Dates: start: 20110906, end: 20111220
  5. PREDNISOLONE ACETATE [Concomitant]

REACTIONS (15)
  - RESPIRATORY FAILURE [None]
  - PNEUMONIA [None]
  - DIARRHOEA [None]
  - LUNG CONSOLIDATION [None]
  - DYSSTASIA [None]
  - LEUKOCYTOSIS [None]
  - GENERAL PHYSICAL HEALTH DETERIORATION [None]
  - SEPSIS [None]
  - DIZZINESS [None]
  - ACTIVITIES OF DAILY LIVING IMPAIRED [None]
  - DISEASE PROGRESSION [None]
  - CONSTIPATION [None]
  - AXONAL NEUROPATHY [None]
  - DYSPNOEA [None]
  - SUPRAVENTRICULAR TACHYCARDIA [None]
